FAERS Safety Report 8028820 (Version 3)
Quarter: 2013Q3

REPORT INFORMATION
  Report Type: Spontaneous
  Country: US (occurrence: US)
  Receive Date: 20110711
  Receipt Date: 20130719
  Transmission Date: 20140515
  Serious: Yes (Other)
  Sender: FDA-Public Use
  Company Number: US-GLAXOSMITHKLINE-A0848924A

PATIENT
  Sex: Male
  Weight: 100.5 kg

DRUGS (7)
  1. AVANDIA [Suspect]
     Indication: DIABETES MELLITUS
     Dosage: 4MG TWICE PER DAY
     Route: 048
     Dates: end: 2007
  2. INSULIN [Concomitant]
  3. COZAAR [Concomitant]
  4. ZESTRIL [Concomitant]
  5. STARLIX [Concomitant]
  6. LIPITOR [Concomitant]
  7. ECOTRIN [Concomitant]

REACTIONS (4)
  - Coronary artery disease [Unknown]
  - Macular oedema [Unknown]
  - Angina pectoris [Unknown]
  - Cardiovascular disorder [Unknown]
